FAERS Safety Report 4685318-X (Version None)
Quarter: 2005Q2

REPORT INFORMATION
  Report Type: 
  Country: None (occurrence: None)
  Receive Date: 20050608
  Receipt Date: 20050531
  Transmission Date: 20051028
  Serious: Yes (Death)
  Sender: FDA-Public Use
  Company Number: US-GLAXOSMITHKLINE-A0560504A

PATIENT
  Age: 70 Year
  Sex: Female
  Weight: 77.3 kg

DRUGS (1)
  1. TUMS E-X TABLETS, ASSORTED BERRIES [Suspect]
     Route: 048
     Dates: start: 19800101, end: 20000101

REACTIONS (1)
  - CARDIAC FAILURE [None]
